FAERS Safety Report 14035260 (Version 7)
Quarter: 2019Q4

REPORT INFORMATION
  Report Type: Report from Study
  Country: US (occurrence: US)
  Receive Date: 20171003
  Receipt Date: 20191202
  Transmission Date: 20200122
  Serious: Yes (Other)
  Sender: FDA-Public Use
  Company Number: US-TESARO, INC-US-2017TSO03068

PATIENT
  Sex: Female

DRUGS (5)
  1. NIRAPARIB [Suspect]
     Active Substance: NIRAPARIB
     Dosage: 200 MG, QD
     Route: 048
  2. NIRAPARIB [Suspect]
     Active Substance: NIRAPARIB
     Indication: OVARIAN CANCER
     Dosage: 300 MG, QD
     Route: 048
     Dates: start: 20170810
  3. NIRAPARIB [Suspect]
     Active Substance: NIRAPARIB
     Dosage: 200 MG, QD
     Route: 048
  4. NIRAPARIB [Suspect]
     Active Substance: NIRAPARIB
     Dosage: 200 MG, QD
     Route: 048
     Dates: start: 20171117
  5. NIRAPARIB [Suspect]
     Active Substance: NIRAPARIB
     Dosage: 200 MG, QD

REACTIONS (27)
  - Hepatic enzyme increased [Not Recovered/Not Resolved]
  - Tachycardia [Not Recovered/Not Resolved]
  - Epistaxis [Not Recovered/Not Resolved]
  - Procedural pain [Not Recovered/Not Resolved]
  - Carbohydrate antigen 125 increased [Not Recovered/Not Resolved]
  - Malaise [Not Recovered/Not Resolved]
  - Fatigue [Recovering/Resolving]
  - Anxiety [Not Recovered/Not Resolved]
  - Weight increased [Not Recovered/Not Resolved]
  - Tenderness [Not Recovered/Not Resolved]
  - Haemoptysis [Not Recovered/Not Resolved]
  - Asthenia [Recovering/Resolving]
  - Cough [Not Recovered/Not Resolved]
  - Gastroenteritis viral [Unknown]
  - Neuropathy peripheral [Recovering/Resolving]
  - Vitamin D decreased [Unknown]
  - Pruritus [Not Recovered/Not Resolved]
  - Staphylococcal infection [Recovered/Resolved]
  - Nausea [Recovered/Resolved]
  - Contusion [Not Recovered/Not Resolved]
  - Peripheral swelling [Not Recovered/Not Resolved]
  - Vomiting [Recovered/Resolved]
  - Fluid replacement [Not Recovered/Not Resolved]
  - Feeling abnormal [Not Recovered/Not Resolved]
  - Insomnia [Not Recovered/Not Resolved]
  - Blood pressure increased [Not Recovered/Not Resolved]
  - Headache [Not Recovered/Not Resolved]
